FAERS Safety Report 10361251 (Version 2)
Quarter: 2014Q3

REPORT INFORMATION
  Report Type: Spontaneous
  Country: US (occurrence: US)
  Receive Date: 20140804
  Receipt Date: 20140804
  Transmission Date: 20150326
  Serious: Yes (Hospitalization, Disabling, Other)
  Sender: FDA-Public Use
  Company Number: US-009507513-2010SP004550

PATIENT
  Sex: Female
  Weight: 90.72 kg

DRUGS (1)
  1. NUVARING [Suspect]
     Active Substance: ETHINYL ESTRADIOL\ETONOGESTREL
     Indication: CONTRACEPTION
     Route: 067
     Dates: start: 2006

REACTIONS (9)
  - Myocardial infarction [Unknown]
  - Unintended pregnancy [Recovered/Resolved]
  - Dyspnoea [Unknown]
  - Chest pain [Unknown]
  - Hypertension [Unknown]
  - Embolism venous [Unknown]
  - Angina pectoris [Unknown]
  - Chest pain [Unknown]
  - Victim of crime [Unknown]

NARRATIVE: CASE EVENT DATE: 200801
